FAERS Safety Report 9763407 (Version 1)
Quarter: 2013Q4

REPORT INFORMATION
  Report Type: Spontaneous
  Country: US (occurrence: US)
  Receive Date: 20131216
  Receipt Date: 20131216
  Transmission Date: 20140711
  Serious: No
  Sender: FDA-Public Use
  Company Number: US-BIOGENIDEC-2013BI108977

PATIENT
  Sex: Male

DRUGS (10)
  1. TECFIDERA [Suspect]
     Indication: PRODUCT USED FOR UNKNOWN INDICATION
     Route: 048
  2. VIT D [Concomitant]
  3. ADDERALL [Concomitant]
  4. ZYRTEC [Concomitant]
  5. GABAPENTIN [Concomitant]
  6. FISH OIL [Concomitant]
  7. MAGNESIUM [Concomitant]
  8. VIT B COMPLEX [Concomitant]
  9. LEXAPRO [Concomitant]
     Indication: DEPRESSION
  10. CITALOPRAM [Concomitant]
     Indication: DEPRESSION

REACTIONS (2)
  - Apathy [Unknown]
  - Fatigue [Unknown]
